FAERS Safety Report 9853261 (Version 2)
Quarter: 2014Q1

REPORT INFORMATION
  Report Type: Spontaneous
  Country: IT (occurrence: IT)
  Receive Date: 20140129
  Receipt Date: 20140212
  Transmission Date: 20141002
  Serious: Yes (Other)
  Sender: FDA-Public Use
  Company Number: IT-BRISTOL-MYERS SQUIBB COMPANY-20109617

PATIENT
  Age: 59 Year
  Sex: Male

DRUGS (4)
  1. ERBITUX SOLN FOR INF [Suspect]
     Indication: COLON CANCER METASTATIC
     Route: 042
     Dates: start: 20121223, end: 20130401
  2. IRINOTECAN [Suspect]
     Indication: CHEMOTHERAPY
     Route: 042
     Dates: start: 20121223, end: 20130401
  3. 5-FLUOROURACIL [Suspect]
     Indication: CHEMOTHERAPY
     Dosage: REDUCED TO 710MG RECEIVED UNTIL TO 01-APR-2013
     Route: 040
     Dates: start: 20121223, end: 20130401
  4. FOLINIC ACID [Concomitant]
     Indication: CHEMOTHERAPY
     Route: 042
     Dates: start: 20121223, end: 20130401

REACTIONS (1)
  - Atrial fibrillation [Unknown]
